FAERS Safety Report 4705684-6 (Version None)
Quarter: 2005Q2

REPORT INFORMATION
  Report Type: 
  Country: None (occurrence: None)
  Receive Date: 20050629
  Receipt Date: 20050617
  Transmission Date: 20051028
  Serious: Yes (Life-Threatening)
  Sender: FDA-Public Use
  Company Number: OMPQ-NO-0506S-0858

PATIENT
  Age: 77 Year
  Sex: Male

DRUGS (9)
  1. OMNIPAQUE 140 [Suspect]
     Indication: RECTAL CANCER
     Dosage: 100 ML, SINGLE DOSE, I.V.
     Route: 042
     Dates: start: 20050606, end: 20050606
  2. ZOLPIDEM TARTRATE (MYSLEE) [Concomitant]
  3. CANDESARTAL CILEXETIL (BLOPRESS) [Concomitant]
  4. NIFEDIPINE (ADALAT CR) [Concomitant]
  5. URSODEOXYCHOLIC ACID (URSO) [Concomitant]
  6. FAMOTIDINE [Concomitant]
  7. MALTOSE, SODIUM LACTATE, POTASSIUM CHLORIDE, SODIUM CHLORI (POTACOL-R) [Concomitant]
  8. SOCIUM CHLORIDE (SEISHOKU) [Concomitant]
  9. BETAMETHASONE (RINDERON) [Concomitant]

REACTIONS (9)
  - DEPRESSED LEVEL OF CONSCIOUSNESS [None]
  - DISCOMFORT [None]
  - HEART RATE INCREASED [None]
  - HYPERHIDROSIS [None]
  - HYPERSENSITIVITY [None]
  - MUSCULOSKELETAL STIFFNESS [None]
  - PO2 DECREASED [None]
  - POST PROCEDURAL COMPLICATION [None]
  - RESPIRATORY FAILURE [None]
